FAERS Safety Report 18577515 (Version 2)
Quarter: 2020Q4

REPORT INFORMATION
  Report Type: Other
  Country: US (occurrence: US)
  Receive Date: 20201204
  Receipt Date: 20201210
  Transmission Date: 20210114
  Serious: Yes (Other)
  Sender: FDA-Public Use
  Company Number: US-ROCHE-2720208

PATIENT
  Sex: Male
  Weight: 74.91 kg

DRUGS (2)
  1. AMPYRA [Concomitant]
     Active Substance: DALFAMPRIDINE
     Indication: GAIT DISTURBANCE
     Route: 048
  2. OCREVUS [Suspect]
     Active Substance: OCRELIZUMAB
     Indication: PRIMARY PROGRESSIVE MULTIPLE SCLEROSIS
     Dosage: DATE OF TREATMENT: 09/AUG/2019, 23/AUG/2019, 07/FEB/2020 AND 07/AUG/2020
     Route: 042
     Dates: start: 2018, end: 202008

REACTIONS (2)
  - Influenza [Recovered/Resolved]
  - Multiple sclerosis [Not Recovered/Not Resolved]

NARRATIVE: CASE EVENT DATE: 2018
